FAERS Safety Report 20009933 (Version 3)
Quarter: 2021Q4

REPORT INFORMATION
  Report Type: Spontaneous
  Country: VC (occurrence: VC)
  Receive Date: 20211028
  Receipt Date: 20211110
  Transmission Date: 20220304
  Serious: Yes (Other)
  Sender: FDA-Public Use
  Company Number: VC-PFIZER INC-202101374988

PATIENT
  Sex: Female

DRUGS (1)
  1. DEPO-PROVERA [Suspect]
     Active Substance: MEDROXYPROGESTERONE ACETATE
     Indication: Contraception
     Dosage: UNK
     Dates: start: 20210910

REACTIONS (2)
  - Heavy menstrual bleeding [Not Recovered/Not Resolved]
  - Full blood count decreased [Unknown]
